FAERS Safety Report 20536591 (Version 2)
Quarter: 2022Q1

REPORT INFORMATION
  Report Type: Report from Study
  Country: FR (occurrence: FR)
  Receive Date: 20220302
  Receipt Date: 20220325
  Transmission Date: 20220423
  Serious: Yes (Life-Threatening, Hospitalization)
  Sender: FDA-Public Use
  Company Number: FR-JNJFOC-20211014380

PATIENT
  Age: 65 Year
  Sex: Male
  Weight: 72 kg

DRUGS (10)
  1. PLACEBO [Suspect]
     Active Substance: UNSPECIFIED INGREDIENT
     Indication: Prostate cancer
     Dosage: MED KIT NUMBER 885-0341
     Route: 048
     Dates: start: 20210318, end: 20210902
  2. CLOPIDOGREL [Concomitant]
     Active Substance: CLOPIDOGREL BISULFATE
     Indication: Arterial disorder
     Route: 048
     Dates: start: 20210801, end: 20210924
  3. ATORVASTATIN [Concomitant]
     Active Substance: ATORVASTATIN
     Indication: Arterial disorder
     Route: 048
     Dates: start: 20210801
  4. PENTOXIFYLLINE [Concomitant]
     Active Substance: PENTOXIFYLLINE
     Indication: Arterial disorder
     Route: 048
     Dates: start: 20210801
  5. NAFRONYL [Concomitant]
     Active Substance: NAFRONYL
     Indication: Arterial disorder
     Route: 048
     Dates: start: 20210707
  6. ACETAMINOPHEN [Concomitant]
     Active Substance: ACETAMINOPHEN
     Indication: Product used for unknown indication
     Dosage: INDICATION: POSTOPERATIVE
     Route: 048
     Dates: start: 20210920
  7. TRAMADOL [Concomitant]
     Active Substance: TRAMADOL
     Indication: Product used for unknown indication
     Dosage: INDICATION: POSTOPERATIVE
     Route: 048
     Dates: start: 20210920, end: 20211004
  8. PHLOROGLUCINOL [Concomitant]
     Active Substance: PHLOROGLUCINOL
     Indication: Product used for unknown indication
     Dosage: INDICATION: POSTOPERATIVE
     Route: 048
     Dates: start: 20210920, end: 20211004
  9. 1,3,5-TRIMETHOXYBENZENE [Concomitant]
     Active Substance: 1,3,5-TRIMETHOXYBENZENE
     Indication: Product used for unknown indication
     Dosage: INDICATION: POSTOPERATIVE
     Route: 048
     Dates: start: 20210920, end: 20211004
  10. TINZAPARIN SODIUM [Concomitant]
     Active Substance: TINZAPARIN SODIUM
     Indication: Product used for unknown indication
     Dosage: INDICATION: POSTOPERATIVE
     Route: 058
     Dates: start: 20210925

REACTIONS (3)
  - Pelvic venous thrombosis [Recovered/Resolved]
  - Pulmonary embolism [Recovered/Resolved]
  - Lymphocele [Recovered/Resolved]

NARRATIVE: CASE EVENT DATE: 20210930
